FAERS Safety Report 9335270 (Version 1)
Quarter: 2013Q2

REPORT INFORMATION
  Report Type: Spontaneous
  Country: US (occurrence: US)
  Receive Date: 20130606
  Receipt Date: 20130606
  Transmission Date: 20140414
  Serious: Yes (Hospitalization)
  Sender: FDA-Public Use
  Company Number: US-MYLANLABS-2013S1011446

PATIENT
  Age: 80 Year
  Sex: Male

DRUGS (4)
  1. OLANZAPINE [Suspect]
     Indication: BIPOLAR DISORDER
     Route: 065
  2. ASPIRIN [Concomitant]
     Route: 065
  3. AMLODIPINE [Concomitant]
     Route: 065
  4. INSULIN [Concomitant]
     Indication: DIABETES MELLITUS
     Route: 065

REACTIONS (1)
  - Hypothermia [Recovered/Resolved]
